FAERS Safety Report 6012280-X (Version None)
Quarter: 2008Q4

REPORT INFORMATION
  Report Type: 
  Country: None (occurrence: None)
  Receive Date: 20081218
  Receipt Date: 20081023
  Transmission Date: 20090506
  Serious: Yes (Other)
  Sender: FDA-Public Use
  Company Number: US-ASTRAZENECA-2008UW23560

PATIENT
  Age: 30 Year
  Sex: Female

DRUGS (8)
  1. SYMBICORT [Suspect]
     Dosage: 160/4.5 MCG
     Route: 055
     Dates: start: 20081008
  2. NEURONTIN [Concomitant]
  3. NEXIUM [Concomitant]
  4. SINGULAIR [Concomitant]
  5. XANAX [Concomitant]
  6. MINERAL TAB [Concomitant]
  7. MULTI-VITAMIN [Concomitant]
  8. ALBUTEROL [Concomitant]

REACTIONS (3)
  - DYSPHONIA [None]
  - ORAL CANDIDIASIS [None]
  - PAIN [None]
